FAERS Safety Report 7660233-8 (Version None)
Quarter: 2011Q3

REPORT INFORMATION
  Report Type: 
  Country: None (occurrence: None)
  Receive Date: 20110805
  Receipt Date: 20110728
  Transmission Date: 20111222
  Serious: Yes (Other)
  Sender: FDA-Public Use
  Company Number: PHHY2011US68808

PATIENT
  Sex: Male

DRUGS (7)
  1. CAYSTON [Concomitant]
  2. VITAMINS NOS [Concomitant]
  3. TOBI [Suspect]
     Indication: CYSTIC FIBROSIS
     Dosage: 300 MG, BID
  4. ZITHROMAX [Concomitant]
  5. CREON [Concomitant]
  6. ADVAIR DISKUS 100/50 [Concomitant]
  7. FLOVENT [Concomitant]

REACTIONS (3)
  - LUNG INFECTION [None]
  - MALAISE [None]
  - PYREXIA [None]
